FAERS Safety Report 7625241-1 (Version None)
Quarter: 2011Q3

REPORT INFORMATION
  Report Type: 
  Country: None (occurrence: None)
  Receive Date: 20110713
  Receipt Date: 20110628
  Transmission Date: 20111222
  Serious: Yes (Hospitalization, Other)
  Sender: FDA-Public Use
  Company Number: 2011MA008251

PATIENT
  Age: 60 Year
  Sex: Female

DRUGS (3)
  1. ALPRAZOLAM [Suspect]
     Indication: INTENTIONAL OVERDOSE
     Dosage: 20.25 MG
  2. BUSPIRONE HCL [Suspect]
     Indication: INTENTIONAL OVERDOSE
     Dosage: 405 MG
  3. MIRTAZAPINE [Suspect]
     Indication: INTENTIONAL OVERDOSE
     Dosage: 405 MG

REACTIONS (7)
  - SUICIDE ATTEMPT [None]
  - HYPOXIA [None]
  - DEPRESSED LEVEL OF CONSCIOUSNESS [None]
  - INTENTIONAL OVERDOSE [None]
  - ELECTROCARDIOGRAM QT PROLONGED [None]
  - ATELECTASIS [None]
  - SEDATION [None]
